FAERS Safety Report 19965295 (Version 1)
Quarter: 2021Q4

REPORT INFORMATION
  Report Type: Spontaneous
  Country: GB (occurrence: GB)
  Receive Date: 20211018
  Receipt Date: 20211018
  Transmission Date: 20220303
  Serious: Yes (Disabling, Other)
  Sender: FDA-Public Use
  Company Number: GB-ABBVIE-21K-167-4117866-00

PATIENT
  Age: 57 Year
  Sex: Female
  Weight: 67 kg

DRUGS (6)
  1. DEPAKOTE [Suspect]
     Active Substance: DIVALPROEX SODIUM
     Indication: Euphoric mood
     Route: 048
     Dates: start: 20160213
  2. DEPAKOTE [Suspect]
     Active Substance: DIVALPROEX SODIUM
     Route: 048
  3. ARIPIPRAZOLE [Suspect]
     Active Substance: ARIPIPRAZOLE
     Indication: Product used for unknown indication
     Route: 048
     Dates: start: 20160213
  4. ARIPIPRAZOLE [Suspect]
     Active Substance: ARIPIPRAZOLE
     Dosage: DOSE WAS INCREASED TO UNKNOWN DOSE
     Route: 048
  5. DYDROGESTERONE\ESTRADIOL [Concomitant]
     Active Substance: DYDROGESTERONE\ESTRADIOL
     Indication: Hormone replacement therapy
  6. ESTRADIOL\NORETHINDRONE ACETATE [Concomitant]
     Active Substance: ESTRADIOL\NORETHINDRONE ACETATE
     Indication: Hormone replacement therapy

REACTIONS (25)
  - Dysphemia [Recovering/Resolving]
  - Lethargy [Unknown]
  - Sleep disorder [Unknown]
  - Poor personal hygiene [Unknown]
  - Defaecation disorder [Unknown]
  - Tooth loss [Unknown]
  - Food craving [Unknown]
  - Gingival ulceration [Unknown]
  - Loose tooth [Unknown]
  - Gingival disorder [Not Recovered/Not Resolved]
  - Tooth disorder [Not Recovered/Not Resolved]
  - Muscle spasms [Unknown]
  - Disturbance in attention [Not Recovered/Not Resolved]
  - Memory impairment [Not Recovered/Not Resolved]
  - Abnormal weight gain [Unknown]
  - Abnormal behaviour [Unknown]
  - Myalgia [Unknown]
  - Feeling abnormal [Unknown]
  - Fatigue [Unknown]
  - Body temperature abnormal [Unknown]
  - Pollakiuria [Unknown]
  - Vision blurred [Unknown]
  - Headache [Unknown]
  - Diarrhoea [Not Recovered/Not Resolved]
  - Withdrawal syndrome [Unknown]

NARRATIVE: CASE EVENT DATE: 20160218
